FAERS Safety Report 7050901-3 (Version None)
Quarter: 2010Q4

REPORT INFORMATION
  Report Type: 
  Country: None (occurrence: None)
  Receive Date: 20101018
  Receipt Date: 20101018
  Transmission Date: 20110411
  Serious: Yes (Hospitalization, Other)
  Sender: FDA-Public Use
  Company Number: None

PATIENT
  Age: 40 Year
  Sex: Female
  Weight: 90.7194 kg

DRUGS (1)
  1. MIRENA [Suspect]
     Indication: CONTRACEPTION

REACTIONS (16)
  - ARTHRALGIA [None]
  - BACK PAIN [None]
  - CERVIX OEDEMA [None]
  - DEVICE EXPULSION [None]
  - HAEMORRHAGE [None]
  - HEADACHE [None]
  - JOINT SWELLING [None]
  - MALAISE [None]
  - MYALGIA [None]
  - NECK PAIN [None]
  - NEUTROPHIL COUNT INCREASED [None]
  - OEDEMA PERIPHERAL [None]
  - PAIN IN EXTREMITY [None]
  - VAGINAL SWELLING [None]
  - WEIGHT INCREASED [None]
  - WHITE BLOOD CELL COUNT INCREASED [None]
